FAERS Safety Report 6428089-9 (Version None)
Quarter: 2009Q4

REPORT INFORMATION
  Report Type: 
  Country: None (occurrence: None)
  Receive Date: 20091030
  Receipt Date: 20091015
  Transmission Date: 20100525
  Serious: Yes (Other)
  Sender: FDA-Public Use
  Company Number: 090721-0000876

PATIENT
  Age: 4 Month
  Sex: Female

DRUGS (2)
  1. SABRIL [Suspect]
     Indication: CONVULSION
     Dosage: ; PO
     Route: 048
  2. DEPAKENE [Concomitant]

REACTIONS (1)
  - EYE HAEMORRHAGE [None]
